FAERS Safety Report 4579779-4 (Version None)
Quarter: 2005Q1

REPORT INFORMATION
  Report Type: 
  Country: None (occurrence: None)
  Receive Date: 20050210
  Receipt Date: 20050201
  Transmission Date: 20050727
  Serious: Yes (Other)
  Sender: FDA-Public Use
  Company Number: 2005-02-0121

PATIENT
  Age: 1 Day
  Sex: Female
  Weight: 1.8 kg

DRUGS (1)
  1. BETAMETHASONE [Suspect]
     Dosage: 12 MG INTRAVENOUS
     Route: 042

REACTIONS (6)
  - CAESAREAN SECTION [None]
  - CANDIDIASIS [None]
  - DRUG EXPOSURE DURING PREGNANCY [None]
  - GASTRIC FLUID ANALYSIS ABNORMAL [None]
  - NEONATAL DISORDER [None]
  - PREMATURE BABY [None]
